FAERS Safety Report 9901415 (Version 3)
Quarter: 2015Q3

REPORT INFORMATION
  Report Type: Spontaneous
  Country: US (occurrence: US)
  Receive Date: 20140217
  Receipt Date: 20150810
  Transmission Date: 20151125
  Serious: No
  Sender: FDA-Public Use
  Company Number: US-GILEAD-2011-0041421

PATIENT
  Age: 67 Year
  Sex: Female

DRUGS (1)
  1. LETAIRIS [Suspect]
     Active Substance: AMBRISENTAN
     Indication: PULMONARY HYPERTENSION
     Route: 048
     Dates: start: 20081007, end: 20110706

REACTIONS (9)
  - Dizziness [Unknown]
  - Nasal congestion [Unknown]
  - Hot flush [Unknown]
  - Nausea [Unknown]
  - Night sweats [Unknown]
  - Hepatomegaly [Unknown]
  - Oedema peripheral [Unknown]
  - Abdominal pain [Unknown]
  - Palpitations [Unknown]
